FAERS Safety Report 9081254 (Version 1)
Quarter: 2013Q1

REPORT INFORMATION
  Report Type: Report from Study
  Country: US (occurrence: US)
  Receive Date: 20130130
  Receipt Date: 20130130
  Transmission Date: 20140127
  Serious: No
  Sender: FDA-Public Use
  Company Number: US-ABBOTT-12P-163-0968211-00

PATIENT
  Age: 30 None
  Sex: Female
  Weight: 49.94 kg

DRUGS (7)
  1. HUMIRA [Suspect]
     Indication: ANKYLOSING SPONDYLITIS
     Dates: start: 20120523, end: 20120726
  2. PANTOPRAZOLE [Concomitant]
     Indication: GASTROOESOPHAGEAL REFLUX DISEASE
     Dosage: 20MG DAILY
     Dates: start: 2007
  3. QVAR [Concomitant]
     Indication: ASTHMA
     Dosage: 80MCG 1-2 PUFFS DAILY
     Dates: start: 2005
  4. NAPROXEN [Concomitant]
     Indication: ANKYLOSING SPONDYLITIS
  5. TYLENOL [Concomitant]
     Indication: ANKYLOSING SPONDYLITIS
  6. UNKNOWN CREAM [Concomitant]
     Indication: ANKYLOSING SPONDYLITIS
  7. VOLPIDEN [Concomitant]
     Indication: SLEEP DISORDER THERAPY

REACTIONS (5)
  - Chills [Recovered/Resolved]
  - Drug ineffective [Not Recovered/Not Resolved]
  - Pyrexia [Recovered/Resolved]
  - Pain in extremity [Not Recovered/Not Resolved]
  - Oropharyngeal pain [Unknown]
